FAERS Safety Report 7185894-1 (Version None)
Quarter: 2010Q4

REPORT INFORMATION
  Report Type: 
  Country: None (occurrence: None)
  Receive Date: 20101222
  Receipt Date: 20101209
  Transmission Date: 20110411
  Serious: Yes (Other)
  Sender: FDA-Public Use
  Company Number: CA-GENENTECH-307756

PATIENT
  Sex: Male
  Weight: 96 kg

DRUGS (6)
  1. OMALIZUMAB [Suspect]
     Indication: ASTHMA
     Dosage: 375 MG, Q2W
     Route: 058
     Dates: start: 20070721
  2. OMALIZUMAB [Suspect]
     Dosage: 375 MG, Q2W
     Route: 058
     Dates: start: 20091210
  3. OMALIZUMAB [Suspect]
     Dosage: 375 MG, Q2W
     Route: 058
     Dates: start: 20100429
  4. OMALIZUMAB [Suspect]
     Dosage: 375 MG, Q2W
     Route: 058
     Dates: start: 20070712
  5. PREDNISONE [Concomitant]
     Indication: PRODUCT USED FOR UNKNOWN INDICATION
  6. ALERTEC [Concomitant]
     Indication: PRODUCT USED FOR UNKNOWN INDICATION

REACTIONS (10)
  - CHEST PAIN [None]
  - COUGH [None]
  - DYSPHONIA [None]
  - DYSPNOEA EXERTIONAL [None]
  - FATIGUE [None]
  - INCREASED UPPER AIRWAY SECRETION [None]
  - INFLUENZA [None]
  - RESPIRATORY RATE INCREASED [None]
  - SPUTUM DISCOLOURED [None]
  - TACHYCARDIA [None]
